FAERS Safety Report 5786517-6 (Version None)
Quarter: 2008Q2

REPORT INFORMATION
  Report Type: 
  Country: None (occurrence: None)
  Receive Date: 20080624
  Receipt Date: 20080619
  Transmission Date: 20081010
  Serious: Yes (Life-Threatening, Hospitalization)
  Sender: FDA-Public Use
  Company Number: DE-BOEHRINGER INGELHEIM GMBH, GERMANY-2008-DE-03576DE

PATIENT
  Sex: Male
  Weight: 113 kg

DRUGS (15)
  1. AGGRENOX [Suspect]
     Indication: CEREBROVASCULAR ACCIDENT
     Dosage: 200 MG/25 MG
     Route: 048
     Dates: start: 20080606, end: 20080606
  2. ACTIVASE [Concomitant]
  3. THROMBOPHOB [Concomitant]
     Route: 058
  4. EBRANTIL 60 MG [Concomitant]
  5. ASS 100 MG [Concomitant]
  6. PLAVIX [Concomitant]
  7. PANTOZOL 40 MG [Concomitant]
  8. KALINOR BT [Concomitant]
  9. DELIX 5 MG  DELIX 5   DELIX 5 MG [Concomitant]
  10. BELOC ZOK [Concomitant]
  11. NITRENDIPIN 20 MG [Concomitant]
  12. DIOVAN [Concomitant]
  13. LASIX [Concomitant]
  14. ACTRAPID [Concomitant]
  15. PROTAPHANE [Concomitant]

REACTIONS (2)
  - VENTRICULAR EXTRASYSTOLES [None]
  - VENTRICULAR TACHYCARDIA [None]
